FAERS Safety Report 24688740 (Version 1)
Quarter: 2024Q4

REPORT INFORMATION
  Report Type: Report from Study
  Country: US (occurrence: US)
  Receive Date: 20241203
  Receipt Date: 20241203
  Transmission Date: 20250114
  Serious: Yes (Hospitalization)
  Sender: ALEXION PHARMACEUTICALS
  Company Number: US-AstraZeneca-CH-00755325A

PATIENT
  Weight: 80.997 kg

DRUGS (22)
  1. ACALABRUTINIB [Suspect]
     Active Substance: ACALABRUTINIB
     Indication: Chronic lymphocytic leukaemia
     Dosage: 100 MILLIGRAM
  2. ACALABRUTINIB [Suspect]
     Active Substance: ACALABRUTINIB
     Dosage: 100 MILLIGRAM
  3. ACALABRUTINIB [Suspect]
     Active Substance: ACALABRUTINIB
     Dosage: 100 MILLIGRAM
  4. ACALABRUTINIB [Suspect]
     Active Substance: ACALABRUTINIB
     Dosage: 100 MILLIGRAM
  5. ALLOPURINOL [Concomitant]
     Active Substance: ALLOPURINOL
  6. ALLOPURINOL [Concomitant]
     Active Substance: ALLOPURINOL
     Route: 065
  7. ALPRAZOLAM [Concomitant]
     Active Substance: ALPRAZOLAM
  8. ALPRAZOLAM [Concomitant]
     Active Substance: ALPRAZOLAM
     Route: 065
  9. AMIODARONE [Concomitant]
     Active Substance: AMIODARONE
  10. AMIODARONE [Concomitant]
     Active Substance: AMIODARONE
     Route: 065
  11. ELIQUIS [Concomitant]
     Active Substance: APIXABAN
  12. ELIQUIS [Concomitant]
     Active Substance: APIXABAN
     Route: 065
  13. FINASTERIDE [Concomitant]
     Active Substance: FINASTERIDE
  14. FINASTERIDE [Concomitant]
     Active Substance: FINASTERIDE
     Route: 065
  15. FLOMAX [Concomitant]
     Active Substance: TAMSULOSIN HYDROCHLORIDE
  16. FLOMAX [Concomitant]
     Active Substance: TAMSULOSIN HYDROCHLORIDE
     Route: 065
  17. LOPERAMIDE [Concomitant]
     Active Substance: LOPERAMIDE
  18. LOPERAMIDE [Concomitant]
     Active Substance: LOPERAMIDE
     Route: 065
  19. LOSARTAN [Concomitant]
     Active Substance: LOSARTAN
  20. LOSARTAN [Concomitant]
     Active Substance: LOSARTAN
     Route: 065
  21. SODIUM ZIRCONIUM CYCLOSILICATE [Concomitant]
     Active Substance: SODIUM ZIRCONIUM CYCLOSILICATE
  22. SODIUM ZIRCONIUM CYCLOSILICATE [Concomitant]
     Active Substance: SODIUM ZIRCONIUM CYCLOSILICATE
     Route: 065

REACTIONS (2)
  - Blood potassium abnormal [Recovering/Resolving]
  - Arthralgia [Recovering/Resolving]
